FAERS Safety Report 9461475 (Version 1)
Quarter: 2013Q3

REPORT INFORMATION
  Report Type: Spontaneous
  Country: FR (occurrence: FR)
  Receive Date: 20130816
  Receipt Date: 20130816
  Transmission Date: 20140515
  Serious: Yes (Other)
  Sender: FDA-Public Use
  Company Number: PHHY2013FR077344

PATIENT
  Sex: Female

DRUGS (9)
  1. ACLASTA [Suspect]
     Indication: OSTEOPOROSIS
     Dosage: UNK
     Route: 042
     Dates: start: 20130710
  2. LEVOTHYROX [Concomitant]
     Indication: HYPOTHYROIDISM
     Dosage: 150 UG, QD
     Route: 048
  3. PROPANOLOL [Concomitant]
     Indication: HYPERTENSION
     Dosage: 20 MG, BID
     Route: 048
  4. EUCREAS [Concomitant]
     Indication: DIABETES MELLITUS
     Dosage: 50MG\1000MG, QD
     Route: 048
  5. COTAREG [Concomitant]
     Indication: HYPERTENSION
     Dosage: 160/12.5, QD
     Route: 048
  6. AMAREL [Concomitant]
     Dosage: 4 MG, QD
  7. SEROPLEX [Concomitant]
     Dosage: 10 MG, TID
  8. SERMION [Concomitant]
     Dosage: 10 MG, TID
  9. BIOMAG [Concomitant]
     Dosage: 2 DF, BID
     Dates: start: 20130619, end: 20130715

REACTIONS (5)
  - Skin lesion [Recovered/Resolved]
  - Papule [Recovered/Resolved]
  - Erythema [Recovered/Resolved]
  - Pruritus [Recovered/Resolved]
  - Urticaria [Not Recovered/Not Resolved]
